FAERS Safety Report 4882241-2 (Version None)
Quarter: 2006Q1

REPORT INFORMATION
  Report Type: 
  Country: None (occurrence: None)
  Receive Date: 20060113
  Receipt Date: 20060113
  Transmission Date: 20060701
  Serious: Yes (Other)
  Sender: FDA-Public Use
  Company Number: None

PATIENT
  Sex: Female
  Weight: 57.1532 kg

DRUGS (1)
  1. CALCIMAR [Suspect]
     Indication: SENILE OSTEOPOROSIS
     Dosage: 200 INTERNATIONAL UNITS 3X WK IM
     Route: 030
     Dates: start: 20060106

REACTIONS (3)
  - CHILLS [None]
  - NAUSEA [None]
  - PRURITUS [None]
